FAERS Safety Report 13847783 (Version 1)
Quarter: 2017Q3

REPORT INFORMATION
  Report Type: Spontaneous
  Country: US (occurrence: US)
  Receive Date: 20170808
  Receipt Date: 20170808
  Transmission Date: 20171127
  Serious: No
  Sender: FDA-Public Use
  Company Number: None

PATIENT
  Sex: Female
  Weight: 44.49 kg

DRUGS (1)
  1. GUANFACINE HCL 2MG PARR [Suspect]
     Active Substance: GUANFACINE HYDROCHLORIDE
     Indication: ATTENTION DEFICIT/HYPERACTIVITY DISORDER
     Dosage: DOSE - 2MG, 30-30?FREQUENCY - DAILY?ROUTE - ER TABLETS, ORAL
     Route: 048

REACTIONS (2)
  - Drug ineffective [None]
  - Product substitution issue [None]
